FAERS Safety Report 5257971-3 (Version None)
Quarter: 2007Q1

REPORT INFORMATION
  Report Type: 
  Country: None (occurrence: None)
  Receive Date: 20070307
  Receipt Date: 20061117
  Transmission Date: 20070707
  Serious: No
  Sender: FDA-Public Use
  Company Number: US-GLAXOSMITHKLINE-A0627956A

PATIENT
  Age: 60 Year
  Sex: Female

DRUGS (2)
  1. REQUIP [Suspect]
     Indication: RESTLESS LEGS SYNDROME
     Route: 048
     Dates: start: 20061116
  2. NO CONCURRENT MEDICATION [Concomitant]

REACTIONS (4)
  - DRUG ADMINISTRATION ERROR [None]
  - MALAISE [None]
  - NAUSEA [None]
  - VOMITING [None]
